FAERS Safety Report 6584724-6 (Version None)
Quarter: 2010Q1

REPORT INFORMATION
  Report Type: 
  Country: None (occurrence: None)
  Receive Date: 20100217
  Receipt Date: 20100208
  Transmission Date: 20100710
  Serious: Yes (Other)
  Sender: FDA-Public Use
  Company Number: PHHY2010JP05375

PATIENT
  Age: 78 Year
  Sex: Female

DRUGS (2)
  1. NEORAL [Suspect]
     Indication: APLASTIC ANAEMIA
     Dosage: 90 MG DAILY
     Route: 048
     Dates: start: 20070101
  2. CELECOXIB [Suspect]
     Route: 048

REACTIONS (6)
  - BLOOD CREATININE INCREASED [None]
  - BLOOD POTASSIUM DECREASED [None]
  - BLOOD SODIUM DECREASED [None]
  - DISSEMINATED INTRAVASCULAR COAGULATION [None]
  - ELECTROLYTE DEPLETION [None]
  - RENAL IMPAIRMENT [None]
